FAERS Safety Report 13383836 (Version 1)
Quarter: 2017Q1

REPORT INFORMATION
  Report Type: Spontaneous
  Country: BE (occurrence: BE)
  Receive Date: 20170329
  Receipt Date: 20170329
  Transmission Date: 20170429
  Serious: Yes (Other)
  Sender: FDA-Public Use
  Company Number: BE-INCYTE CORPORATION-2017IN002257

PATIENT

DRUGS (1)
  1. JAKAVI [Suspect]
     Active Substance: RUXOLITINIB
     Indication: MYELOFIBROSIS
     Dosage: UNK
     Route: 065
     Dates: start: 2016

REACTIONS (3)
  - Thrombocytopenia [Recovered/Resolved]
  - Second primary malignancy [Not Recovered/Not Resolved]
  - Neuroendocrine tumour [Not Recovered/Not Resolved]
